FAERS Safety Report 8925699 (Version 1)
Quarter: 2012Q4

REPORT INFORMATION
  Report Type: 
  Country: US (occurrence: US)
  Receive Date: 20121126
  Receipt Date: 20121126
  Transmission Date: 20130627
  Serious: No
  Sender: FDA-Public Use
  Company Number: US-TEVA-369343USA

PATIENT
  Age: 56 Year
  Sex: Female

DRUGS (4)
  1. NUVIGIL [Suspect]
     Indication: FATIGUE
     Dosage: 150 Milligram Daily;
     Route: 048
     Dates: start: 20121102, end: 20121102
  2. NUVIGIL [Suspect]
     Dosage: 75 Milligram Daily;
     Route: 048
     Dates: start: 20121103
  3. VITAMIN D3 [Concomitant]
     Indication: SUPPLEMENTATION THERAPY
  4. GILENYA [Concomitant]
     Indication: MULTIPLE SCLEROSIS

REACTIONS (4)
  - Drug effect increased [Recovered/Resolved]
  - Insomnia [Recovered/Resolved]
  - Drug ineffective [Not Recovered/Not Resolved]
  - Off label use [Unknown]
